FAERS Safety Report 6143191-7 (Version None)
Quarter: 2009Q2

REPORT INFORMATION
  Report Type: 
  Country: None (occurrence: None)
  Receive Date: 20090403
  Receipt Date: 20060815
  Transmission Date: 20091009
  Serious: Yes (Hospitalization)
  Sender: FDA-Public Use
  Company Number: DE-ROCHE-459651

PATIENT
  Sex: Female

DRUGS (77)
  1. MYCOPHENOLATE MOFETIL [Suspect]
     Route: 048
     Dates: start: 20030921, end: 20031016
  2. MYCOPHENOLATE MOFETIL [Suspect]
     Route: 048
     Dates: start: 20031022
  3. MYCOPHENOLATE MOFETIL [Suspect]
     Route: 048
     Dates: start: 20040311
  4. MYCOPHENOLATE MOFETIL [Suspect]
     Route: 048
     Dates: start: 20060624
  5. DACLIZUMAB [Suspect]
     Dosage: BASELINE VISIT
     Route: 042
     Dates: start: 20030921
  6. DACLIZUMAB [Suspect]
     Dosage: WEEK 2
     Route: 042
     Dates: start: 20031004
  7. DACLIZUMAB [Suspect]
     Dosage: WEEK 4
     Route: 042
     Dates: start: 20031018
  8. DACLIZUMAB [Suspect]
     Dosage: WEEK 6
     Route: 042
     Dates: start: 20031103
  9. DACLIZUMAB [Suspect]
     Dosage: WEEK 8
     Route: 042
     Dates: start: 20031113
  10. CYCLOSPORINE [Suspect]
     Route: 048
     Dates: start: 20030107
  11. CYCLOSPORINE [Suspect]
     Route: 048
     Dates: start: 20030921, end: 20030921
  12. CYCLOSPORINE [Suspect]
     Route: 048
     Dates: start: 20030930, end: 20030930
  13. CYCLOSPORINE [Suspect]
     Route: 048
     Dates: start: 20031010
  14. CYCLOSPORINE [Suspect]
     Route: 048
     Dates: start: 20031012
  15. CYCLOSPORINE [Suspect]
     Route: 048
     Dates: start: 20031014, end: 20031014
  16. CYCLOSPORINE [Suspect]
     Route: 048
     Dates: start: 20031015
  17. CYCLOSPORINE [Suspect]
     Route: 048
     Dates: start: 20031016
  18. CYCLOSPORINE [Suspect]
     Route: 048
     Dates: start: 20031020
  19. CYCLOSPORINE [Suspect]
     Route: 048
     Dates: start: 20031021
  20. CYCLOSPORINE [Suspect]
     Route: 048
     Dates: start: 20031027
  21. CYCLOSPORINE [Suspect]
     Route: 048
     Dates: start: 20031120
  22. CYCLOSPORINE [Suspect]
     Route: 048
     Dates: start: 20031204
  23. CYCLOSPORINE [Suspect]
     Route: 048
     Dates: start: 20031211
  24. CYCLOSPORINE [Suspect]
     Route: 048
     Dates: start: 20040127
  25. CYCLOSPORINE [Suspect]
     Route: 048
     Dates: start: 20040220
  26. CYCLOSPORINE [Suspect]
     Route: 048
     Dates: start: 20040619
  27. CYCLOSPORINE [Suspect]
     Route: 048
     Dates: start: 20050321
  28. CYCLOSPORINE [Suspect]
     Route: 048
     Dates: start: 20050927
  29. CYCLOSPORINE [Suspect]
     Route: 048
     Dates: start: 20060407
  30. CYCLOSPORINE [Suspect]
     Route: 048
     Dates: start: 20060410
  31. CYCLOSPORINE [Suspect]
     Route: 048
     Dates: start: 20060624
  32. PREDNISOLONE [Suspect]
     Route: 042
     Dates: start: 20030921
  33. PREDNISOLONE [Suspect]
     Route: 042
     Dates: start: 20030922, end: 20030922
  34. PREDNISOLONE [Suspect]
     Route: 042
     Dates: start: 20030930, end: 20031003
  35. PREDNISOLONE [Suspect]
     Route: 048
     Dates: start: 20030922
  36. PREDNISOLONE [Suspect]
     Route: 048
     Dates: start: 20030925
  37. PREDNISOLONE [Suspect]
     Route: 048
     Dates: start: 20030928
  38. PREDNISOLONE [Suspect]
     Route: 048
     Dates: start: 20030930
  39. PREDNISOLONE [Suspect]
     Route: 048
     Dates: start: 20031003
  40. PREDNISOLONE [Suspect]
     Route: 048
     Dates: start: 20031006
  41. PREDNISOLONE [Suspect]
     Route: 048
     Dates: start: 20031009
  42. PREDNISOLONE [Suspect]
     Route: 048
     Dates: start: 20031012
  43. PREDNISOLONE [Suspect]
     Route: 048
     Dates: start: 20031020
  44. PREDNISOLONE [Suspect]
     Route: 048
     Dates: start: 20031031
  45. PREDNISOLONE [Suspect]
     Route: 048
     Dates: start: 20031128
  46. PREDNISOLONE [Suspect]
     Route: 048
     Dates: start: 20031228
  47. PREDNISOLONE [Suspect]
     Route: 048
     Dates: start: 20040129
  48. PREDNISOLONE [Suspect]
     Route: 048
     Dates: start: 20040327
  49. PREDNISOLONE [Suspect]
     Route: 048
     Dates: start: 20040920
  50. EINSALPHA [Concomitant]
     Route: 048
     Dates: start: 20030921, end: 20031016
  51. DREISAVIT N [Concomitant]
     Route: 048
     Dates: start: 20030921, end: 20031013
  52. NORVASC [Concomitant]
     Route: 048
     Dates: start: 20030920, end: 20040420
  53. PANTOZOL [Concomitant]
     Route: 048
     Dates: start: 20030921
  54. BELOC-ZOK MITE [Concomitant]
     Route: 048
     Dates: start: 20030925
  55. LASIX [Concomitant]
     Route: 048
     Dates: start: 20031002, end: 20031015
  56. LASIX [Concomitant]
     Route: 048
     Dates: start: 20040107, end: 20040618
  57. ACTONEL [Concomitant]
     Route: 048
     Dates: start: 20030928
  58. AMPHOTERICIN B [Concomitant]
     Route: 048
     Dates: start: 20030927, end: 20031103
  59. AMPHOTERICIN B [Concomitant]
     Route: 048
     Dates: start: 20040311, end: 20041108
  60. CIPROBAY [Concomitant]
     Route: 048
     Dates: start: 20031009, end: 20031020
  61. PRAVASTATIN SODIUM [Concomitant]
     Route: 048
     Dates: start: 20031014, end: 20031211
  62. PRAVASTATIN SODIUM [Concomitant]
     Route: 048
     Dates: start: 20040313
  63. AMPICILLIN AND SULBACTAM [Concomitant]
     Route: 042
     Dates: start: 20030921, end: 20030923
  64. NOVALGIN [Concomitant]
     Route: 048
     Dates: start: 20030922, end: 20030925
  65. GANCICLOVIR [Concomitant]
     Route: 054
     Dates: start: 20030101
  66. NEORECORMON [Concomitant]
     Route: 058
     Dates: start: 20031005, end: 20031023
  67. ACTRAPID [Concomitant]
     Dosage: PRN
     Route: 058
     Dates: start: 20031004, end: 20031023
  68. MOXIFLOXACIN HCL [Concomitant]
     Route: 048
     Dates: start: 20031021, end: 20031103
  69. FLUVASTATIN [Concomitant]
     Route: 048
     Dates: start: 20031219, end: 20040311
  70. ENALAPRIL [Concomitant]
     Route: 048
     Dates: start: 20040421
  71. CREON [Concomitant]
     Route: 048
     Dates: start: 20040820
  72. CREON [Concomitant]
     Route: 048
     Dates: start: 20060209
  73. CARMEN [Concomitant]
     Dates: start: 20050827
  74. AMPICILLIN AND SULBACTAM [Concomitant]
     Route: 048
     Dates: start: 20030923, end: 20030930
  75. AMPICILLIN AND SULBACTAM [Concomitant]
     Route: 048
     Dates: start: 20031015, end: 20031023
  76. AMPICILLIN AND SULBACTAM [Concomitant]
     Route: 048
     Dates: start: 20031120
  77. AMPICILLIN AND SULBACTAM [Concomitant]
     Route: 048
     Dates: start: 20040107, end: 20040107

REACTIONS (1)
  - CYTOMEGALOVIRUS COLITIS [None]
